FAERS Safety Report 15155099 (Version 28)
Quarter: 2019Q3

REPORT INFORMATION
  Report Type: Report from Study
  Country: CA (occurrence: CA)
  Receive Date: 20180717
  Receipt Date: 20190930
  Transmission Date: 20191004
  Serious: Yes (Death, Hospitalization, Other)
  Sender: FDA-Public Use
  Company Number: CA-BRISTOL-MYERS SQUIBB COMPANY-BMS-2017-098860

PATIENT
  Age: 50 Year
  Sex: Male

DRUGS (8)
  1. NIVOLUMAB [Suspect]
     Active Substance: NIVOLUMAB
     Indication: PRODUCT USED FOR UNKNOWN INDICATION
     Dosage: 118,MG, Q2WK
     Route: 042
     Dates: start: 20171031
  2. NIVOLUMAB [Suspect]
     Active Substance: NIVOLUMAB
     Indication: PRODUCT USED FOR UNKNOWN INDICATION
     Dosage: 146 UNK
     Route: 042
     Dates: start: 20171031
  3. NIVOLUMAB [Suspect]
     Active Substance: NIVOLUMAB
     Indication: PRODUCT USED FOR UNKNOWN INDICATION
     Dosage: 200 MG, Q2WK
     Route: 042
     Dates: start: 20171031
  4. NIVOLUMAB [Suspect]
     Active Substance: NIVOLUMAB
     Indication: PRODUCT USED FOR UNKNOWN INDICATION
     Dosage: 3 MG/KG, Q2WK
     Route: 042
     Dates: start: 20171031
  5. YERVOY [Suspect]
     Active Substance: IPILIMUMAB
     Indication: MALIGNANT MELANOMA
     Dosage: 3 MG/KG (214.2), Q3WK
     Route: 065
     Dates: start: 20171031
  6. NIVOLUMAB [Suspect]
     Active Substance: NIVOLUMAB
     Indication: METASTATIC MALIGNANT MELANOMA
     Dosage: 210 MG, Q2WK
     Route: 042
     Dates: start: 20171031
  7. NIVOLUMAB [Suspect]
     Active Substance: NIVOLUMAB
     Indication: PRODUCT USED FOR UNKNOWN INDICATION
     Dosage: 121 MG, Q2WK
     Route: 042
     Dates: start: 20180205
  8. CELEBREX [Concomitant]
     Active Substance: CELECOXIB
     Indication: PRODUCT USED FOR UNKNOWN INDICATION
     Dosage: 100 NG, BID
     Route: 065

REACTIONS (40)
  - Arthralgia [Unknown]
  - Blood test abnormal [Unknown]
  - Red blood cell count decreased [Unknown]
  - Neutrophil count increased [Unknown]
  - Thyroxine decreased [Unknown]
  - Blood glucose increased [Unknown]
  - Somnolence [Not Recovered/Not Resolved]
  - Malaise [Recovered/Resolved]
  - Laboratory test abnormal [Unknown]
  - Thrombocytosis [Unknown]
  - Arthritis [Unknown]
  - Pain [Unknown]
  - Appetite disorder [Recovered/Resolved]
  - Mean platelet volume [Unknown]
  - Eosinophil count increased [Unknown]
  - Haemoglobin decreased [Unknown]
  - Lipase decreased [Unknown]
  - Platelet count increased [Unknown]
  - Skin lesion [Unknown]
  - Diarrhoea [Not Recovered/Not Resolved]
  - Headache [Not Recovered/Not Resolved]
  - Haematocrit decreased [Unknown]
  - Lymphocyte count decreased [Unknown]
  - Death [Fatal]
  - Vomiting [Recovering/Resolving]
  - Nausea [Recovering/Resolving]
  - Lyme disease [Not Recovered/Not Resolved]
  - Anxiety [Unknown]
  - Rash [Not Recovered/Not Resolved]
  - Abdominal pain [Unknown]
  - Alanine aminotransferase increased [Unknown]
  - Pruritus [Not Recovered/Not Resolved]
  - Fatigue [Recovered/Resolved]
  - Dyspnoea [Recovered/Resolved]
  - Mean cell volume decreased [Unknown]
  - Blood alkaline phosphatase increased [Unknown]
  - Blood phosphorus increased [Unknown]
  - Monocyte count increased [Unknown]
  - Anaemia [Unknown]
  - Weight fluctuation [Unknown]

NARRATIVE: CASE EVENT DATE: 20171031
